FAERS Safety Report 23567648 (Version 1)
Quarter: 2024Q1

REPORT INFORMATION
  Report Type: Spontaneous
  Country: US (occurrence: US)
  Receive Date: 20240226
  Receipt Date: 20240226
  Transmission Date: 20240410
  Serious: No
  Sender: FDA-Public Use
  Company Number: US-ABBVIE-5652192

PATIENT
  Age: 64 Year
  Sex: Female
  Weight: 72 kg

DRUGS (3)
  1. RESTASIS [Suspect]
     Active Substance: CYCLOSPORINE
     Indication: Dry eye
     Dosage: 1 VIAL ON EACH EYE?CYCLOSPORINE 0.5MG/ML EMULSION?STARTED IN MAY 2007 OR MAY 2008
     Route: 047
     Dates: end: 202402
  2. REFRESH TEARS [Suspect]
     Active Substance: CARBOXYMETHYLCELLULOSE SODIUM
     Indication: Dry eye
     Dosage: 1 DROP ON EACH EYE?CMC 5MG/ML SOLUTION?STARTED IN MAY 2007 OR MAY 2008
     Route: 047
  3. METFORMIN [Concomitant]
     Active Substance: METFORMIN HYDROCHLORIDE
     Indication: Type 2 diabetes mellitus

REACTIONS (3)
  - Lacrimation increased [Not Recovered/Not Resolved]
  - Dry eye [Not Recovered/Not Resolved]
  - Eye irritation [Not Recovered/Not Resolved]

NARRATIVE: CASE EVENT DATE: 20240201
